FAERS Safety Report 9810336 (Version 1)
Quarter: 2014Q1

REPORT INFORMATION
  Report Type: Spontaneous
  Country: US (occurrence: US)
  Receive Date: 20140110
  Receipt Date: 20140110
  Transmission Date: 20141002
  Serious: Yes (Other)
  Sender: FDA-Public Use
  Company Number: US-TARO-2014P1000097

PATIENT
  Sex: Female

DRUGS (1)
  1. WARFARIN SODIUM TABLETS USP 5MG [Suspect]
     Indication: CEREBROVASCULAR ACCIDENT

REACTIONS (2)
  - Anaphylactic reaction [Unknown]
  - Product substitution issue [Unknown]
